FAERS Safety Report 24336149 (Version 1)
Quarter: 2024Q3

REPORT INFORMATION
  Report Type: Report from Study
  Country: ID (occurrence: ID)
  Receive Date: 20240919
  Receipt Date: 20240919
  Transmission Date: 20241016
  Serious: No
  Sender: ROCHE
  Company Number: ID-ROCHE-3427263

PATIENT
  Age: 65 Year
  Sex: Female

DRUGS (8)
  1. OSELTAMIVIR [Suspect]
     Active Substance: OSELTAMIVIR
     Indication: COVID-19
     Route: 065
  2. LEVOFLOKSASIN [Concomitant]
  3. OMEPRAZOLE [Concomitant]
     Active Substance: OMEPRAZOLE
  4. LINAGLIPTIN [Concomitant]
     Active Substance: LINAGLIPTIN
  5. ROSUVASTATIN [Concomitant]
     Active Substance: ROSUVASTATIN\ROSUVASTATIN CALCIUM
  6. ASPIRIN [Concomitant]
     Active Substance: ASPIRIN
  7. CEFTRIAXONE [Concomitant]
     Active Substance: CEFTRIAXONE\CEFTRIAXONE SODIUM
  8. AMBROXOL [Concomitant]
     Active Substance: AMBROXOL

REACTIONS (2)
  - Off label use [Unknown]
  - Nausea [Unknown]
